FAERS Safety Report 19719195 (Version 1)
Quarter: 2021Q3

REPORT INFORMATION
  Report Type: Spontaneous
  Country: DE (occurrence: DE)
  Receive Date: 20210818
  Receipt Date: 20210818
  Transmission Date: 20211014
  Serious: Yes (Other)
  Sender: FDA-Public Use
  Company Number: DE-AUROBINDO-AUR-APL-2017-32480

PATIENT
  Age: 31 Year
  Sex: Male
  Weight: 89 kg

DRUGS (1)
  1. MIRTAZAPINE FILM?COATED TABLET [Suspect]
     Active Substance: MIRTAZAPINE
     Indication: DEPRESSION
     Dosage: 30 MILLIGRAM, ONCE A DAY
     Route: 048
     Dates: start: 20140501, end: 2016

REACTIONS (2)
  - Loss of libido [Recovering/Resolving]
  - Erectile dysfunction [Unknown]

NARRATIVE: CASE EVENT DATE: 20150101
